FAERS Safety Report 15584184 (Version 1)
Quarter: 2018Q4

REPORT INFORMATION
  Report Type: Spontaneous
  Country: IN (occurrence: IN)
  Receive Date: 20181105
  Receipt Date: 20181105
  Transmission Date: 20190205
  Serious: No
  Sender: FDA-Public Use
  Company Number: IN-LUPIN LIMITED-2018-05198

PATIENT
  Age: 28 Year
  Sex: Female

DRUGS (2)
  1. YAMINI TABS [Suspect]
     Active Substance: DROSPIRENONE\ETHINYL ESTRADIOL
     Dosage: 1 DF, QD, AFTER MEAL
     Route: 048
     Dates: start: 20180711
  2. YAMINI TABS [Suspect]
     Active Substance: DROSPIRENONE\ETHINYL ESTRADIOL
     Indication: MENSTRUAL DISORDER
     Dosage: 1 DF, QD, AFTER MEAL
     Route: 048
     Dates: start: 20180705, end: 20180706

REACTIONS (6)
  - Product dose omission [Unknown]
  - Insomnia [Recovered/Resolved]
  - Menorrhagia [Not Recovered/Not Resolved]
  - Anxiety [Not Recovered/Not Resolved]
  - Off label use [Unknown]
  - Abdominal discomfort [Not Recovered/Not Resolved]

NARRATIVE: CASE EVENT DATE: 20180705
